FAERS Safety Report 11579946 (Version 3)
Quarter: 2016Q1

REPORT INFORMATION
  Report Type: Spontaneous
  Country: US (occurrence: None)
  Receive Date: 20150930
  Receipt Date: 20160208
  Transmission Date: 20160525
  Serious: Yes (Hospitalization, Other)
  Sender: FDA-Public Use
  Company Number: US-MDT-ADR-2015-01876

PATIENT
  Age: 27 Year
  Sex: Female

DRUGS (2)
  1. PRIALT [Suspect]
     Active Substance: ZICONOTIDE ACETATE
     Indication: PAIN
     Dosage: 1.999 MCG/DAY
  2. COMPOUNDED BACLOFEN INTRATHECAL 840 MCG/ML [Suspect]
     Active Substance: BACLOFEN
     Indication: PAIN
     Dosage: 167.89 MCG/DAY

REACTIONS (5)
  - No therapeutic response [None]
  - Road traffic accident [None]
  - Gait disturbance [None]
  - Pain [None]
  - Device breakage [None]
